FAERS Safety Report 19380088 (Version 1)
Quarter: 2021Q2

REPORT INFORMATION
  Report Type: Spontaneous
  Country: US (occurrence: US)
  Receive Date: 20210607
  Receipt Date: 20210607
  Transmission Date: 20210717
  Serious: Yes (Life-Threatening, Hospitalization, Other)
  Sender: FDA-Public Use
  Company Number: US-HIKMA PHARMACEUTICALS USA INC.-US-H14001-21-54565

PATIENT
  Age: 55 Year
  Sex: Male

DRUGS (6)
  1. METHADONE [Concomitant]
     Active Substance: METHADONE HYDROCHLORIDE
     Indication: PROCEDURAL PAIN
     Route: 065
  2. METHADONE [Concomitant]
     Active Substance: METHADONE HYDROCHLORIDE
     Indication: RADIATION NEUROPATHY
  3. BUPRENORPHINE. [Suspect]
     Active Substance: BUPRENORPHINE
     Indication: RADIATION NEUROPATHY
     Route: 065
  4. BUPRENORPHINE. [Suspect]
     Active Substance: BUPRENORPHINE
     Indication: PROCEDURAL PAIN
     Route: 065
  5. OXYMORPHONE [Concomitant]
     Active Substance: OXYMORPHONE
     Indication: PROCEDURAL PAIN
  6. OXYMORPHONE [Concomitant]
     Active Substance: OXYMORPHONE
     Indication: RADIATION NEUROPATHY
     Route: 065

REACTIONS (8)
  - Dyspnoea [Recovering/Resolving]
  - Pain [Recovering/Resolving]
  - Muscle spasms [Recovering/Resolving]
  - Hyperhidrosis [Recovering/Resolving]
  - Confusional state [Recovering/Resolving]
  - Drug withdrawal syndrome [Recovering/Resolving]
  - Tremor [Recovering/Resolving]
  - Myoclonus [Recovering/Resolving]
